FAERS Safety Report 21099761 (Version 6)
Quarter: 2022Q3

REPORT INFORMATION
  Report Type: Spontaneous
  Country: US (occurrence: None)
  Receive Date: 20220719
  Receipt Date: 20220824
  Transmission Date: 20221026
  Serious: Yes (Hospitalization)
  Sender: FDA-Public Use
  Company Number: US-ROCHE-3142531

PATIENT
  Age: 71 Year
  Sex: Female
  Weight: 97.610 kg

DRUGS (9)
  1. ERIVEDGE [Suspect]
     Active Substance: VISMODEGIB
     Indication: Basal cell carcinoma
     Route: 048
     Dates: start: 20220218, end: 20220706
  2. ALBUTEROL [Concomitant]
     Active Substance: ALBUTEROL
  3. BUMETANIDE [Concomitant]
     Active Substance: BUMETANIDE
  4. ELIQUIS [Concomitant]
     Active Substance: APIXABAN
     Route: 048
  5. LOSARTAN [Concomitant]
     Active Substance: LOSARTAN
  6. METFORMIN [Concomitant]
     Active Substance: METFORMIN HYDROCHLORIDE
  7. METOPROLOL [Concomitant]
     Active Substance: METOPROLOL
  8. MONTELUKAST [Concomitant]
     Active Substance: MONTELUKAST SODIUM
  9. ROSUVASTATIN [Concomitant]
     Active Substance: ROSUVASTATIN

REACTIONS (4)
  - Gastrointestinal haemorrhage [Recovered/Resolved]
  - Stress [Unknown]
  - Gastric ulcer [Recovered/Resolved]
  - Rectal haemorrhage [Not Recovered/Not Resolved]

NARRATIVE: CASE EVENT DATE: 20220706
